FAERS Safety Report 19446876 (Version 1)
Quarter: 2021Q2

REPORT INFORMATION
  Report Type: Spontaneous
  Country: US (occurrence: US)
  Receive Date: 20210619
  Receipt Date: 20210619
  Transmission Date: 20210717
  Serious: Yes (Disabling)
  Sender: FDA-Public Use
  Company Number: None

PATIENT
  Age: 85 Year
  Sex: Female
  Weight: 71.21 kg

DRUGS (9)
  1. ANASTROZOLE. [Suspect]
     Active Substance: ANASTROZOLE
     Indication: MASTECTOMY
     Dosage: QUANTITY:TABLET;OTHER FREQUENCY:TIME;OTHER ROUTE:DRY MOUTH?
     Route: 048
     Dates: start: 2018
  2. VITAMIN C [Concomitant]
     Active Substance: ASCORBIC ACID
  3. IRON [Concomitant]
     Active Substance: IRON
  4. VITAMIN B12 [Concomitant]
     Active Substance: CYANOCOBALAMIN
  5. ZINC. [Concomitant]
     Active Substance: ZINC
  6. ANASTROZOLE. [Suspect]
     Active Substance: ANASTROZOLE
     Indication: METASTATIC LYMPHOMA
     Dosage: QUANTITY:TABLET;OTHER FREQUENCY:TIME;OTHER ROUTE:DRY MOUTH?
     Route: 048
     Dates: start: 2018
  7. TUMERIC [Concomitant]
     Active Substance: HERBALS\TURMERIC
  8. FISH OIL [Concomitant]
     Active Substance: FISH OIL
  9. VIT D [Concomitant]
     Active Substance: VITAMIN D NOS

REACTIONS (5)
  - Lymphatic disorder [None]
  - Peripheral swelling [None]
  - Dry skin [None]
  - Skin disorder [None]
  - Skin exfoliation [None]
